FAERS Safety Report 16035015 (Version 1)
Quarter: 2019Q1

REPORT INFORMATION
  Report Type: Spontaneous
  Country: US (occurrence: US)
  Receive Date: 20190205
  Receipt Date: 20190205
  Transmission Date: 20190418
  Serious: Yes (Other)
  Sender: FDA-Public Use
  Company Number: None

PATIENT
  Age: 9 Year
  Sex: Male
  Weight: 41.3 kg

DRUGS (1)
  1. CLOBAZAM 2,.5MG/ML [Suspect]
     Active Substance: CLOBAZAM
     Indication: EPILEPSY WITH MYOCLONIC-ATONIC SEIZURES
     Dosage: 1.5 ML AT BEDTIME, ORALLY
     Route: 048
     Dates: start: 20181214

REACTIONS (3)
  - Product substitution issue [None]
  - Epilepsy [None]
  - Urinary incontinence [None]

NARRATIVE: CASE EVENT DATE: 20181214
